FAERS Safety Report 4972771-7 (Version None)
Quarter: 2006Q2

REPORT INFORMATION
  Report Type: 
  Country: None (occurrence: None)
  Receive Date: 20060414
  Receipt Date: 20060403
  Transmission Date: 20061013
  Serious: Yes (Hospitalization)
  Sender: FDA-Public Use
  Company Number: US-JNJFOC-20060400553

PATIENT
  Age: 11 Year
  Sex: Male

DRUGS (3)
  1. CONCERTA [Suspect]
     Indication: DRUG USE FOR UNKNOWN INDICATION
     Route: 048
  2. GUAIFENESIN [Concomitant]
  3. LAMICTAL [Concomitant]

REACTIONS (2)
  - HYPERTENSION [None]
  - VOMITING [None]
